FAERS Safety Report 19183305 (Version 1)
Quarter: 2021Q2

REPORT INFORMATION
  Report Type: Report from Study
  Country: US (occurrence: US)
  Receive Date: 20210427
  Receipt Date: 20210427
  Transmission Date: 20210717
  Serious: No
  Sender: FDA-Public Use
  Company Number: US-ACADIA PHARMACEUTICALS INC.-ACA-2021-PIM-001295

PATIENT
  Sex: Male

DRUGS (13)
  1. NUPLAZID [Suspect]
     Active Substance: PIMAVANSERIN TARTRATE
     Indication: HALLUCINATION
  2. NUPLAZID [Suspect]
     Active Substance: PIMAVANSERIN TARTRATE
     Indication: DELUSION
  3. CARBIDOPA/LEVODOPA [Concomitant]
     Active Substance: CARBIDOPA\LEVODOPA
  4. DONEPEZIL. [Concomitant]
     Active Substance: DONEPEZIL
  5. CLONAZEPAM. [Concomitant]
     Active Substance: CLONAZEPAM
  6. FINASTERIDE. [Concomitant]
     Active Substance: FINASTERIDE
  7. ATENOLOL. [Concomitant]
     Active Substance: ATENOLOL
  8. SINEMET [Concomitant]
     Active Substance: CARBIDOPA\LEVODOPA
  9. PEPCID AC [Concomitant]
     Active Substance: FAMOTIDINE
  10. NUPLAZID [Suspect]
     Active Substance: PIMAVANSERIN TARTRATE
     Indication: PARKINSON^S DISEASE PSYCHOSIS
     Dosage: 34 MILLIGRAM, QD
     Route: 048
     Dates: start: 202102, end: 202104
  11. NITROSTAT [Concomitant]
     Active Substance: NITROGLYCERIN
  12. ADVIL [Concomitant]
     Active Substance: IBUPROFEN
  13. AMLODIPINE [Concomitant]
     Active Substance: AMLODIPINE BESYLATE

REACTIONS (6)
  - Gastric disorder [Unknown]
  - Therapeutic response unexpected [Unknown]
  - Urinary incontinence [Unknown]
  - Dysstasia [Not Recovered/Not Resolved]
  - Gait disturbance [Unknown]
  - Peripheral swelling [Recovering/Resolving]
